FAERS Safety Report 14530352 (Version 2)
Quarter: 2018Q2

REPORT INFORMATION
  Report Type: Spontaneous
  Country: NL (occurrence: NL)
  Receive Date: 20180214
  Receipt Date: 20180423
  Transmission Date: 20180711
  Serious: Yes (Other)
  Sender: FDA-Public Use
  Company Number: NL-JNJFOC-20180211433

PATIENT
  Age: 48 Year
  Sex: Male

DRUGS (15)
  1. IVABRADINE [Concomitant]
     Active Substance: IVABRADINE
     Dosage: 1*/DAAGS
     Route: 065
  2. ACETYLSALICYLZUUR [Concomitant]
     Active Substance: ASPIRIN
     Indication: CARDIOVASCULAR DISORDER
     Route: 065
  3. REMICADE [Suspect]
     Active Substance: INFLIXIMAB
     Indication: COLITIS ULCERATIVE
     Route: 042
     Dates: start: 20131121, end: 20160811
  4. REMSIMA [Suspect]
     Active Substance: INFLIXIMAB
     Indication: COLITIS ULCERATIVE
     Route: 065
     Dates: start: 20170518, end: 20170518
  5. PRASUGREL. [Concomitant]
     Active Substance: PRASUGREL
     Dosage: 1*/DAAGS
     Route: 065
  6. FERROFUMARAAT [Concomitant]
     Indication: IRON DEFICIENCY
     Route: 065
  7. REMSIMA [Suspect]
     Active Substance: INFLIXIMAB
     Indication: COLITIS ULCERATIVE
     Route: 065
     Dates: start: 20161006, end: 20161006
  8. REMSIMA [Suspect]
     Active Substance: INFLIXIMAB
     Indication: COLITIS ULCERATIVE
     Route: 065
     Dates: start: 20170907, end: 20170907
  9. ASACOL [Concomitant]
     Active Substance: MESALAMINE
     Indication: COLITIS ULCERATIVE
     Route: 065
     Dates: start: 201110
  10. PANTOPRAZOLE [Concomitant]
     Active Substance: PANTOPRAZOLE
     Dosage: 1*/DAAGS
     Route: 065
  11. PERINDOPRIL [Concomitant]
     Active Substance: PERINDOPRIL
     Route: 065
  12. REMSIMA [Suspect]
     Active Substance: INFLIXIMAB
     Indication: COLITIS ULCERATIVE
     Route: 065
     Dates: start: 20170126, end: 20170126
  13. ACETYLSALICYLZUUR [Concomitant]
     Active Substance: ASPIRIN
     Indication: CARDIOVASCULAR DISORDER
     Route: 065
  14. AZATHIOPRINE. [Concomitant]
     Active Substance: AZATHIOPRINE
     Indication: COLITIS ULCERATIVE
     Route: 065
     Dates: start: 201201
  15. ATORVASTATIN [Concomitant]
     Active Substance: ATORVASTATIN
     Indication: CARDIOVASCULAR DISORDER
     Route: 065

REACTIONS (1)
  - Malignant melanoma [Recovered/Resolved]

NARRATIVE: CASE EVENT DATE: 20170905
